FAERS Safety Report 5775645-7 (Version None)
Quarter: 2008Q2

REPORT INFORMATION
  Report Type: 
  Country: None (occurrence: None)
  Receive Date: 20080617
  Receipt Date: 20080403
  Transmission Date: 20081010
  Serious: No
  Sender: FDA-Public Use
  Company Number: US-BAYER-200817673NA

PATIENT
  Age: 33 Year
  Sex: Female
  Weight: 46 kg

DRUGS (2)
  1. YAZ [Suspect]
     Indication: ORAL CONTRACEPTION
     Route: 048
     Dates: start: 20080301
  2. CHINESE HERBAL MEDICINE [Concomitant]

REACTIONS (2)
  - MENSTRUATION DELAYED [None]
  - METRORRHAGIA [None]
